FAERS Safety Report 25244314 (Version 2)
Quarter: 2025Q2

REPORT INFORMATION
  Report Type: Report from Study
  Country: US (occurrence: US)
  Receive Date: 20250428
  Receipt Date: 20250526
  Transmission Date: 20250716
  Serious: Yes (Hospitalization, Other)
  Sender: TAKEDA
  Company Number: US-TAKEDA-2024TUS019552

PATIENT
  Sex: Male
  Weight: 27 kg

DRUGS (24)
  1. HUMAN IMMUNOGLOBULIN G\HYALURONIDASE RECOMBINANT HUMAN [Suspect]
     Active Substance: HUMAN IMMUNOGLOBULIN G\HYALURONIDASE (HUMAN RECOMBINANT)
     Indication: Immune system disorder
     Dosage: 12.5 GRAM, Q4WEEKS
     Dates: start: 20240118
  2. HUMAN IMMUNOGLOBULIN G\HYALURONIDASE RECOMBINANT HUMAN [Suspect]
     Active Substance: HUMAN IMMUNOGLOBULIN G\HYALURONIDASE (HUMAN RECOMBINANT)
     Indication: Hypergammaglobulinaemia
     Dosage: 12.5 GRAM, Q4WEEKS
  3. HUMAN IMMUNOGLOBULIN G\HYALURONIDASE RECOMBINANT HUMAN [Suspect]
     Active Substance: HUMAN IMMUNOGLOBULIN G\HYALURONIDASE (HUMAN RECOMBINANT)
     Indication: Immunodeficiency common variable
  4. ACETAMINOPHEN [Concomitant]
     Active Substance: ACETAMINOPHEN
  5. EPINEPHRINE [Concomitant]
     Active Substance: EPINEPHRINE
  6. SODIUM CHLORIDE [Concomitant]
     Active Substance: SODIUM CHLORIDE
  7. LEVOCETIRIZINE DIHYDROCHLORIDE [Concomitant]
     Active Substance: LEVOCETIRIZINE DIHYDROCHLORIDE
  8. PULMICORT FLEXHALER [Concomitant]
     Active Substance: BUDESONIDE
  9. OFLOXACIN [Concomitant]
     Active Substance: OFLOXACIN
  10. ALBUTEROL SULFATE [Concomitant]
     Active Substance: ALBUTEROL SULFATE
  11. MONTELUKAST SODIUM [Concomitant]
     Active Substance: MONTELUKAST SODIUM
  12. XYZAL [Concomitant]
     Active Substance: LEVOCETIRIZINE DIHYDROCHLORIDE
  13. AUGMENTIN [Concomitant]
     Active Substance: AMOXICILLIN\CLAVULANATE POTASSIUM
  14. LIDOCAINE [Concomitant]
     Active Substance: LIDOCAINE
  15. CIPROFLOXACIN [Concomitant]
     Active Substance: CIPROFLOXACIN
  16. DIPHENHYDRAMINE [Concomitant]
     Active Substance: DIPHENHYDRAMINE
  17. CETIRIZINE HCL [Concomitant]
     Active Substance: CETIRIZINE HYDROCHLORIDE
  18. DEXAMETHASONE [Concomitant]
     Active Substance: DEXAMETHASONE
  19. TOBRAMYCIN [Concomitant]
     Active Substance: TOBRAMYCIN
  20. LIDOCAINE\PRILOCAINE [Concomitant]
     Active Substance: LIDOCAINE\PRILOCAINE
  21. DIPHENHYDRAMINE HYDROCHLORIDE [Concomitant]
     Active Substance: DIPHENHYDRAMINE HYDROCHLORIDE
  22. CIPROFLOXACIN\DEXAMETHASONE [Concomitant]
     Active Substance: CIPROFLOXACIN\DEXAMETHASONE
  23. CIPROFLOXACIN HYDROCHLORIDE [Concomitant]
     Active Substance: CIPROFLOXACIN HYDROCHLORIDE
  24. TOBRAMYCIN AND DEXAMETHASONE [Concomitant]
     Active Substance: DEXAMETHASONE\TOBRAMYCIN

REACTIONS (9)
  - Norovirus infection [Unknown]
  - Croup infectious [Recovered/Resolved]
  - Cystitis [Unknown]
  - Insurance issue [Unknown]
  - Ear infection [Unknown]
  - Sinusitis [Unknown]
  - Nasopharyngitis [Unknown]
  - Product use issue [Unknown]
  - Asthma [Unknown]
